FAERS Safety Report 14607112 (Version 3)
Quarter: 2018Q1

REPORT INFORMATION
  Report Type: Report from Study
  Country: None (occurrence: NL)
  Receive Date: 20180307
  Receipt Date: 20180326
  Transmission Date: 20180509
  Serious: No
  Sender: FDA-Public Use
  Company Number: NL-ABBVIE-18S-114-2274761-00

PATIENT
  Age: 33 Year
  Sex: Female
  Weight: 85 kg

DRUGS (4)
  1. LUCRIN [Suspect]
     Active Substance: LEUPROLIDE ACETATE
     Route: 065
  2. LUCRIN [Suspect]
     Active Substance: LEUPROLIDE ACETATE
     Indication: BREAST CANCER
     Route: 065
     Dates: start: 20160623
  3. LUCRIN [Suspect]
     Active Substance: LEUPROLIDE ACETATE
     Route: 065
  4. LUCRIN DEPOT [Suspect]
     Active Substance: LEUPROLIDE ACETATE
     Indication: BREAST CANCER
     Route: 065
     Dates: start: 20160526, end: 20160526

REACTIONS (1)
  - Breast reconstruction [Recovering/Resolving]

NARRATIVE: CASE EVENT DATE: 201802
